FAERS Safety Report 20667803 (Version 1)
Quarter: 2022Q2

REPORT INFORMATION
  Report Type: Spontaneous
  Country: CN (occurrence: CN)
  Receive Date: 20220404
  Receipt Date: 20220404
  Transmission Date: 20220721
  Serious: Yes (Other)
  Sender: FDA-Public Use
  Company Number: CN-BAXTER-2022BAX006980

PATIENT
  Age: 54 Year
  Sex: Female
  Weight: 63 kg

DRUGS (8)
  1. CYCLOPHOSPHAMIDE [Suspect]
     Active Substance: CYCLOPHOSPHAMIDE
     Indication: Breast cancer female
     Dosage: D1, 1- 2 CYCLES OF CHEMOTHERAPY
     Route: 041
     Dates: start: 20220105
  2. CYCLOPHOSPHAMIDE [Suspect]
     Active Substance: CYCLOPHOSPHAMIDE
     Dosage: 3RD CYCLE OF CHEMOTHERAPY
     Route: 041
     Dates: start: 20220215, end: 20220215
  3. DOCETAXEL [Suspect]
     Active Substance: DOCETAXEL
     Indication: Breast cancer female
     Dosage: D1, 1- 2 CYCLES OF CHEMOTHERAPY
     Route: 041
     Dates: start: 20220105
  4. DOCETAXEL [Suspect]
     Active Substance: DOCETAXEL
     Dosage: 3RD CYCLE OF CHEMOTHERAPY
     Route: 041
     Dates: start: 20220215, end: 20220215
  5. SODIUM CHLORIDE [Suspect]
     Active Substance: SODIUM CHLORIDE
     Indication: Medication dilution
     Dosage: 1-2 CYCLES OF CHEMOTHERAPY
     Route: 041
     Dates: start: 20220105
  6. SODIUM CHLORIDE [Suspect]
     Active Substance: SODIUM CHLORIDE
     Dosage: 3RD CYCLE OF CHEMOTHERAPY
     Route: 041
     Dates: start: 20220215, end: 20220215
  7. DEXTROSE [Suspect]
     Active Substance: DEXTROSE
     Indication: Medication dilution
     Dosage: 1-2 CYCLES OF CHEMOTHERAPY
     Route: 041
     Dates: start: 20220105
  8. DEXTROSE [Suspect]
     Active Substance: DEXTROSE
     Dosage: 3RD CYCLE OF CHEMOTHERAPY
     Route: 041
     Dates: start: 20220215, end: 20220215

REACTIONS (4)
  - Monoplegia [Recovering/Resolving]
  - Urticaria [Recovering/Resolving]
  - Peripheral swelling [Recovering/Resolving]
  - Hypoaesthesia [Recovering/Resolving]

NARRATIVE: CASE EVENT DATE: 20220222
